FAERS Safety Report 19687658 (Version 1)
Quarter: 2021Q3

REPORT INFORMATION
  Report Type: Spontaneous
  Country: US (occurrence: US)
  Receive Date: 20210811
  Receipt Date: 20210811
  Transmission Date: 20211014
  Serious: No
  Sender: FDA-Public Use
  Company Number: US-PFIZER INC-2021650911

PATIENT
  Age: 38 Year
  Sex: Female
  Weight: 68.03 kg

DRUGS (4)
  1. LUPRON DEPOT [Concomitant]
     Active Substance: LEUPROLIDE ACETATE
     Dosage: UNK
  2. IBRANCE [Suspect]
     Active Substance: PALBOCICLIB
     Indication: BREAST CANCER FEMALE
     Dosage: 125 MG, DAILY (DAILY FOR 21 DAYS)
     Route: 048
     Dates: start: 20210406
  3. ANASTRAZOLE DENK [Concomitant]
     Active Substance: ANASTROZOLE
     Dosage: UNK
  4. LISINOPRIL. [Concomitant]
     Active Substance: LISINOPRIL
     Dosage: UNK

REACTIONS (1)
  - White blood cell count decreased [Unknown]
